FAERS Safety Report 17500088 (Version 2)
Quarter: 2020Q2

REPORT INFORMATION
  Report Type: Spontaneous
  Country: US (occurrence: US)
  Receive Date: 20200305
  Receipt Date: 20200408
  Transmission Date: 20200713
  Serious: No
  Sender: FDA-Public Use
  Company Number: US-GLAXOSMITHKLINE-US2020033110

PATIENT
  Age: 66 Year
  Sex: Female

DRUGS (3)
  1. ADVAIR HFA [Suspect]
     Active Substance: FLUTICASONE PROPIONATE\SALMETEROL XINAFOATE
     Indication: ASTHMA LATE ONSET
     Dosage: 2 PUFF(S), BID
     Route: 055
     Dates: start: 202001, end: 202001
  2. ADVAIR DISKUS [Suspect]
     Active Substance: FLUTICASONE PROPIONATE\SALMETEROL XINAFOATE
     Indication: ASTHMA LATE ONSET
     Dosage: UNK
     Route: 055
     Dates: start: 202001, end: 202001
  3. BREO ELLIPTA [Suspect]
     Active Substance: FLUTICASONE FUROATE\VILANTEROL TRIFENATATE
     Indication: ASTHMA LATE ONSET
     Dosage: 1 PUFF(S), QD (EACH MORNING)
     Route: 055
     Dates: start: 20200206

REACTIONS (6)
  - Product dose omission [Unknown]
  - Drug ineffective [Unknown]
  - Wheezing [Unknown]
  - Wrong technique in device usage process [Unknown]
  - Drug tolerance [Unknown]
  - Product complaint [Unknown]

NARRATIVE: CASE EVENT DATE: 202001
